FAERS Safety Report 4650083-9 (Version None)
Quarter: 2005Q2

REPORT INFORMATION
  Report Type: 
  Country: None (occurrence: None)
  Receive Date: 20050428
  Receipt Date: 20050425
  Transmission Date: 20051028
  Serious: Yes (Hospitalization)
  Sender: FDA-Public Use
  Company Number: FRWYE614826APR05

PATIENT
  Age: 51 Year
  Sex: Female

DRUGS (5)
  1. SERESTA (OXAZPEAM, TABLET, 0) [Suspect]
     Dosage: 50 MG 2X PER 1 DAY ORAL
     Route: 048
     Dates: start: 20000101
  2. DEPAKOTE [Suspect]
     Dosage: 1500 MG 1X PER 1 DAY ORAL
     Route: 048
  3. EQUANIL [Suspect]
     Dosage: 400 MG 4X PER 1 DAY ORAL
     Route: 048
     Dates: start: 20000101
  4. NITRAZEPAM [Suspect]
     Dosage: 2.5 MG 1X PER 1 DAY ORAL
     Route: 048
     Dates: start: 20000101
  5. SOLIAN (AMISULPRIDE, , 0) [Suspect]
     Dosage: 300 MG 1X PER 1 DAY

REACTIONS (4)
  - ANXIETY [None]
  - DRUG DEPENDENCE [None]
  - HOT FLUSH [None]
  - TREMOR [None]
